FAERS Safety Report 17524475 (Version 1)
Quarter: 2020Q1

REPORT INFORMATION
  Report Type: Spontaneous
  Country: US (occurrence: US)
  Receive Date: 20200310
  Receipt Date: 20200310
  Transmission Date: 20200409
  Serious: No
  Sender: FDA-Public Use
  Company Number: US-GALDERMA-US19058890

PATIENT
  Age: 15 Year
  Sex: Male

DRUGS (6)
  1. PROACTIV GREEN TEA MOISTURIZER [Concomitant]
     Active Substance: COSMETICS
     Indication: ACNE
     Route: 061
     Dates: start: 20190831, end: 20190907
  2. PROACTIV MD ADAPALENE ACNE TREATMENT [Suspect]
     Active Substance: ADAPALENE
     Indication: ACNE
     Dosage: 0.1%
     Route: 061
     Dates: start: 20190831, end: 20190907
  3. PROACTIV DEEP CLEANSING WASH [Concomitant]
     Active Substance: SALICYLIC ACID
     Indication: ACNE
     Route: 061
     Dates: start: 20190831, end: 20190907
  4. PROACTIV MD DAILY OIL CONTROL SPF 30 [Suspect]
     Active Substance: AVOBENZONE\OCTISALATE\OCTOCRYLENE
     Indication: ACNE
     Route: 061
     Dates: start: 20190831, end: 20190907
  5. PROACTIV MD DEEP CLEANSING FACE WASH [Concomitant]
     Active Substance: COSMETICS
     Indication: ACNE
     Route: 061
     Dates: start: 20190831, end: 20190907
  6. PROACTIV REDNESS RELIEF SERUM [Concomitant]
     Indication: ACNE
     Route: 061
     Dates: start: 20190831, end: 20190907

REACTIONS (8)
  - Erythema [Recovering/Resolving]
  - Acne [Recovering/Resolving]
  - Skin irritation [Recovering/Resolving]
  - Skin burning sensation [Recovering/Resolving]
  - Skin warm [Recovering/Resolving]
  - Skin tightness [Recovering/Resolving]
  - Dry skin [Recovering/Resolving]
  - Rash erythematous [Recovering/Resolving]

NARRATIVE: CASE EVENT DATE: 20190904
